FAERS Safety Report 18904320 (Version 2)
Quarter: 2021Q1

REPORT INFORMATION
  Report Type: Spontaneous
  Country: JP (occurrence: JP)
  Receive Date: 20210217
  Receipt Date: 20210222
  Transmission Date: 20210420
  Serious: Yes (Other)
  Sender: FDA-Public Use
  Company Number: JP-JNJFOC-20210204415

PATIENT
  Age: 83 Year

DRUGS (1)
  1. DARZALEX [Suspect]
     Active Substance: DARATUMUMAB
     Indication: PLASMA CELL MYELOMA
     Dosage: DOSE INTERVAL UNKNOWN
     Route: 041

REACTIONS (2)
  - Infection [Recovered/Resolved]
  - Deep vein thrombosis [Recovered/Resolved]
